FAERS Safety Report 9027264 (Version 2)
Quarter: 2013Q1

REPORT INFORMATION
  Report Type: Report from Study
  Country: US (occurrence: US)
  Receive Date: 20130123
  Receipt Date: 20130307
  Transmission Date: 20140127
  Serious: Yes (Other)
  Sender: FDA-Public Use
  Company Number: US-ABBOTT-13P-163-1038237-00

PATIENT
  Sex: Male
  Weight: 67.19 kg

DRUGS (1)
  1. HUMIRA [Suspect]
     Indication: PSORIASIS
     Dates: start: 20071031, end: 20121207

REACTIONS (1)
  - Mycobacterium tuberculosis complex test positive [Unknown]
